FAERS Safety Report 11320840 (Version 3)
Quarter: 2015Q3

REPORT INFORMATION
  Report Type: Report from Study
  Country: US (occurrence: US)
  Receive Date: 20150729
  Receipt Date: 20150921
  Transmission Date: 20151125
  Serious: Yes (Hospitalization, Other)
  Sender: FDA-Public Use
  Company Number: US-GILEAD-2015-0165211

PATIENT
  Age: 74 Year
  Sex: Female

DRUGS (5)
  1. AMBRISENTAN [Suspect]
     Active Substance: AMBRISENTAN
     Indication: PRODUCT USED FOR UNKNOWN INDICATION
     Dosage: 10 MG, QD
     Route: 065
     Dates: start: 20091223
  2. ADEMPAS [Concomitant]
     Active Substance: RIOCIGUAT
     Dosage: 1 MG, TID
     Dates: end: 20150909
  3. ADEMPAS [Concomitant]
     Active Substance: RIOCIGUAT
     Dosage: UNK
  4. LASIX [Concomitant]
     Active Substance: FUROSEMIDE
     Dosage: UNK
  5. COUMADIN [Concomitant]
     Active Substance: WARFARIN SODIUM
     Dosage: UNK

REACTIONS (7)
  - Small intestinal obstruction [Unknown]
  - Contusion [Unknown]
  - Constipation [Unknown]
  - Epistaxis [Unknown]
  - Oedema peripheral [Unknown]
  - Anaemia [Unknown]
  - International normalised ratio abnormal [Unknown]

NARRATIVE: CASE EVENT DATE: 20150806
